FAERS Safety Report 8840601 (Version 1)
Quarter: 2012Q4

REPORT INFORMATION
  Report Type: 
  Country: FR (occurrence: FR)
  Receive Date: 20121015
  Receipt Date: 20121015
  Transmission Date: 20130627
  Serious: Yes (Hospitalization, Other)
  Sender: FDA-Public Use
  Company Number: FR-PFIZER INC-2012249809

PATIENT
  Age: 42 Year
  Sex: Female
  Weight: 68 kg

DRUGS (3)
  1. EFFEXOR LP [Suspect]
     Indication: DEPRESSION
     Dosage: 75mg (two DF), daily
     Route: 048
     Dates: start: 201205, end: 20120719
  2. EVRA [Concomitant]
     Indication: CONTRACEPTION
     Dosage: UNK
  3. STRESAM [Concomitant]
     Indication: DEPRESSION
     Dosage: 2 DF, daily
     Dates: start: 201205

REACTIONS (2)
  - Cerebral vasoconstriction [Recovering/Resolving]
  - Cerebral infarction [Unknown]
